FAERS Safety Report 19992045 (Version 1)
Quarter: 2021Q4

REPORT INFORMATION
  Report Type: Spontaneous
  Country: IN (occurrence: IN)
  Receive Date: 20211025
  Receipt Date: 20211025
  Transmission Date: 20220303
  Serious: Yes (Other)
  Sender: FDA-Public Use
  Company Number: IN-BOEHRINGERINGELHEIM-2021-BI-134282

PATIENT
  Sex: Female

DRUGS (1)
  1. PRADAXA [Suspect]
     Active Substance: DABIGATRAN ETEXILATE MESYLATE
     Indication: Product used for unknown indication

REACTIONS (3)
  - Haemoglobin decreased [Unknown]
  - Left ventricular failure [Unknown]
  - Gastrointestinal haemorrhage [Unknown]
